FAERS Safety Report 10038446 (Version 3)
Quarter: 2014Q2

REPORT INFORMATION
  Report Type: Report from Study
  Country: ES (occurrence: ES)
  Receive Date: 20140326
  Receipt Date: 20140602
  Transmission Date: 20141212
  Serious: Yes (Hospitalization, Other)
  Sender: FDA-Public Use
  Company Number: ES-GLAXOSMITHKLINE-B0971823A

PATIENT
  Age: 70 Year
  Sex: Male
  Weight: 87 kg

DRUGS (5)
  1. OFATUMUMAB [Suspect]
     Indication: CHRONIC LYMPHOCYTIC LEUKAEMIA
     Dosage: 1000MG CYCLIC
     Route: 042
     Dates: start: 20130822, end: 20140207
  2. IDELALISIB [Suspect]
     Indication: CHRONIC LYMPHOCYTIC LEUKAEMIA
     Dosage: 150MG PER DAY
     Route: 048
     Dates: start: 20130822, end: 20140311
  3. SEPTRIN [Concomitant]
  4. ALLOPURINOL [Concomitant]
  5. FORTASEC [Concomitant]
     Dates: start: 20140119

REACTIONS (2)
  - Neutropenia [Recovered/Resolved]
  - Febrile neutropenia [Recovered/Resolved]
